FAERS Safety Report 12437661 (Version 1)
Quarter: 2016Q2

REPORT INFORMATION
  Report Type: Spontaneous
  Country: ES (occurrence: ES)
  Receive Date: 20160606
  Receipt Date: 20160606
  Transmission Date: 20160815
  Serious: Yes (Hospitalization, Other)
  Sender: FDA-Public Use
  Company Number: ES-GLAXOSMITHKLINE-ES2016GSK067091

PATIENT
  Age: 68 Year
  Sex: Male

DRUGS (8)
  1. PANTOPRAZOL [Concomitant]
     Active Substance: PANTOPRAZOLE SODIUM
  2. ALLOPURINOL. [Concomitant]
     Active Substance: ALLOPURINOL
     Dosage: UNK
     Dates: start: 20140624
  3. COLCHICINE. [Suspect]
     Active Substance: COLCHICINE
     Indication: GOUTY ARTHRITIS
     Dosage: UNK
     Route: 048
     Dates: start: 20150208, end: 20150210
  4. ENALAPRIL [Concomitant]
     Active Substance: ENALAPRIL
     Dosage: UNK
     Dates: start: 20141111
  5. ADIRO [Concomitant]
     Active Substance: ASPIRIN
     Dosage: UNK
     Dates: start: 20140624
  6. FENOFIBRATE. [Concomitant]
     Active Substance: FENOFIBRATE
     Dosage: UNK
     Dates: start: 20140624
  7. ATORVASTATIN [Concomitant]
     Active Substance: ATORVASTATIN
     Dosage: UNK
     Dates: start: 20140624
  8. VOLTAREN [Suspect]
     Active Substance: DICLOFENAC SODIUM
     Indication: GOUTY ARTHRITIS
     Dosage: 100 MG, QD
     Route: 054
     Dates: start: 20150209, end: 20150209

REACTIONS (1)
  - Pancreatitis acute [Unknown]

NARRATIVE: CASE EVENT DATE: 20150203
